FAERS Safety Report 12423881 (Version 1)
Quarter: 2016Q2

REPORT INFORMATION
  Report Type: Spontaneous
  Country: US (occurrence: None)
  Receive Date: 20160531
  Receipt Date: 20160531
  Transmission Date: 20160815
  Serious: Yes (Hospitalization)
  Sender: FDA-Public Use
  Company Number: None

PATIENT
  Age: 68 Year
  Sex: Male
  Weight: 61 kg

DRUGS (1)
  1. ALEMTUZUMAB GENZYME [Suspect]
     Active Substance: ALEMTUZUMAB
     Indication: MULTIPLE SCLEROSIS
     Route: 041
     Dates: start: 20150914, end: 20150918

REACTIONS (5)
  - Procedural pain [None]
  - CSF polymorphonuclear cell count increased [None]
  - Aspergillus infection [None]
  - Fungal test positive [None]
  - Device related infection [None]

NARRATIVE: CASE EVENT DATE: 20160225
